FAERS Safety Report 9414519 (Version 1)
Quarter: 2013Q3

REPORT INFORMATION
  Report Type: Spontaneous
  Country: US (occurrence: US)
  Receive Date: 20130723
  Receipt Date: 20130723
  Transmission Date: 20140515
  Serious: No
  Sender: FDA-Public Use
  Company Number: US-BAYER-2013-089086

PATIENT
  Sex: 0

DRUGS (3)
  1. ALEVE CAPLET [Suspect]
     Indication: HEADACHE
     Dosage: 3 DF, HS
  2. ALEVE CAPLET [Suspect]
     Indication: BACK PAIN
  3. PEPTO BISMOL [Concomitant]
     Indication: DYSPEPSIA

REACTIONS (1)
  - Incorrect dose administered [None]
